FAERS Safety Report 7780589-5 (Version None)
Quarter: 2011Q3

REPORT INFORMATION
  Report Type: 
  Country: None (occurrence: None)
  Receive Date: 20110927
  Receipt Date: 20110225
  Transmission Date: 20111222
  Serious: No
  Sender: FDA-Public Use
  Company Number: US-BRISTOL-MYERS SQUIBB COMPANY-12579009

PATIENT
  Age: 63 Year
  Sex: Female
  Weight: 66 kg

DRUGS (2)
  1. XALATAN [Concomitant]
     Dosage: XALATAN EYE DROPS
  2. AVAPRO [Suspect]
     Indication: BLOOD PRESSURE
     Dosage: STARTED AS 300MG,DOSE REDUCED TO 150MG (1-1.5YRS AGO) THEN TO 75MG(SEVERAL MONTHS AGO)
     Dates: start: 19990101

REACTIONS (5)
  - BACK PAIN [None]
  - PAIN IN EXTREMITY [None]
  - DIZZINESS [None]
  - CHILLS [None]
  - BLOOD PRESSURE DECREASED [None]
